FAERS Safety Report 19949097 (Version 1)
Quarter: 2021Q4

REPORT INFORMATION
  Report Type: Spontaneous
  Country: US (occurrence: US)
  Receive Date: 20211012
  Receipt Date: 20211012
  Transmission Date: 20220304
  Serious: No
  Sender: FDA-Public Use
  Company Number: None

PATIENT
  Age: 65 Year
  Sex: Male
  Weight: 90 kg

DRUGS (1)
  1. LOTRIMIN [Suspect]
     Active Substance: CLOTRIMAZOLE
     Indication: Fungal skin infection

REACTIONS (1)
  - Dyspnoea [None]
